FAERS Safety Report 5393677-8 (Version None)
Quarter: 2007Q3

REPORT INFORMATION
  Report Type: 
  Country: None (occurrence: None)
  Receive Date: 20070723
  Receipt Date: 20070709
  Transmission Date: 20080115
  Serious: Yes (Hospitalization)
  Sender: FDA-Public Use
  Company Number: US-TYCO HEALTHCARE/MALLINCKRODT-T200700787

PATIENT
  Sex: Female
  Weight: 90.703 kg

DRUGS (4)
  1. RESTORIL [Suspect]
     Indication: INSOMNIA
     Dosage: ONE CAPSULE 3 TIMES IN P.M.
     Route: 048
     Dates: start: 20040101, end: 20070702
  2. ADVANDIA [Concomitant]
     Indication: DIABETES MELLITUS
     Route: 048
     Dates: end: 20070601
  3. ACTOS [Concomitant]
     Indication: DIABETES MELLITUS
     Route: 048
  4. ANTIHYPERTENSIVES [Concomitant]

REACTIONS (5)
  - BLOOD PRESSURE DECREASED [None]
  - CONFUSIONAL STATE [None]
  - INCORRECT DOSE ADMINISTERED [None]
  - LOSS OF CONSCIOUSNESS [None]
  - SOMNOLENCE [None]
